FAERS Safety Report 18192299 (Version 1)
Quarter: 2020Q3

REPORT INFORMATION
  Report Type: Spontaneous
  Country: US (occurrence: US)
  Receive Date: 20200825
  Receipt Date: 20200825
  Transmission Date: 20201103
  Serious: Yes (Other)
  Sender: FDA-Public Use
  Company Number: None

PATIENT
  Age: 13 Year
  Sex: Male
  Weight: 38.25 kg

DRUGS (3)
  1. GAMUNEX C 20GMS [Concomitant]
     Dates: start: 20200821, end: 20200821
  2. GAMUNEX?C [Suspect]
     Active Substance: HUMAN IMMUNOGLOBULIN G
     Indication: ENCEPHALOPATHY
     Dosage: ?          OTHER FREQUENCY:75G OVER2DAYS/Q6WK;?
     Route: 041
     Dates: start: 20200820, end: 20200821
  3. GAMUNEX C 20GMS [Concomitant]
     Dates: start: 20200821, end: 20200821

REACTIONS (3)
  - Infusion related reaction [None]
  - Scratch [None]
  - Pruritus [None]

NARRATIVE: CASE EVENT DATE: 20200821
